FAERS Safety Report 11719484 (Version 1)
Quarter: 2015Q4

REPORT INFORMATION
  Report Type: Spontaneous
  Country: US (occurrence: US)
  Receive Date: 20151110
  Receipt Date: 20151110
  Transmission Date: 20160304
  Serious: Yes (Hospitalization)
  Sender: FDA-Public Use
  Company Number: US-THE MEDICINES COMPANY-US-MDCO-15-00427

PATIENT
  Age: 65 Year
  Sex: Female
  Weight: 92 kg

DRUGS (2)
  1. ORBACTIV [Suspect]
     Active Substance: ORITAVANCIN
     Indication: CYSTITIS
     Route: 041
     Dates: start: 20150409, end: 20150409
  2. ORBACTIV [Suspect]
     Active Substance: ORITAVANCIN
     Route: 041
     Dates: start: 20150416, end: 20150416

REACTIONS (8)
  - Chills [Recovered/Resolved]
  - Tachypnoea [Recovered/Resolved]
  - Hypersensitivity [Recovered/Resolved]
  - Pyrexia [Recovered/Resolved]
  - Erythema [Recovered/Resolved]
  - Off label use [Recovered/Resolved]
  - Tachycardia [Recovered/Resolved]
  - Mechanical urticaria [Recovered/Resolved]

NARRATIVE: CASE EVENT DATE: 201504
